FAERS Safety Report 22182207 (Version 2)
Quarter: 2023Q2

REPORT INFORMATION
  Report Type: Spontaneous
  Country: US (occurrence: US)
  Receive Date: 20230406
  Receipt Date: 20230502
  Transmission Date: 20230721
  Serious: No
  Sender: FDA-Public Use
  Company Number: US-SANOFI-01561985

PATIENT
  Age: 70 Year
  Sex: Male
  Weight: 81.633 kg

DRUGS (1)
  1. LANTUS SOLOSTAR [Suspect]
     Active Substance: INSULIN GLARGINE
     Indication: Type 2 diabetes mellitus
     Dosage: 11 IU,  (11UNITS AM/PM)

REACTIONS (1)
  - Inappropriate schedule of product administration [Unknown]
